FAERS Safety Report 8085503-3 (Version None)
Quarter: 2012Q1

REPORT INFORMATION
  Report Type: 
  Country: None (occurrence: None)
  Receive Date: 20120128
  Receipt Date: 20110412
  Transmission Date: 20120608
  Serious: No
  Sender: FDA-Public Use
  Company Number: US-ABBOTT-11P-163-0710440-00

PATIENT
  Sex: Male
  Weight: 99.88 kg

DRUGS (4)
  1. HUMIRA [Suspect]
     Indication: ARTHRITIS
     Route: 058
     Dates: start: 20101001, end: 20110401
  2. LISINOPRIL [Concomitant]
     Indication: HYPERTENSION
     Dosage: 10 MG
  3. BUSPIRONE HCL [Concomitant]
     Indication: PRURITUS
     Dosage: 15 MG
     Dates: start: 20070101
  4. HUMIRA [Suspect]
     Indication: PSORIASIS
     Route: 058
     Dates: start: 20081001, end: 20101001

REACTIONS (4)
  - RHEUMATOID ARTHRITIS [None]
  - ARTHRALGIA [None]
  - ARTHRITIS [None]
  - DRUG DOSE OMISSION [None]
